FAERS Safety Report 4299455-5 (Version None)
Quarter: 2004Q1

REPORT INFORMATION
  Report Type: 
  Country: None (occurrence: None)
  Receive Date: 20040217
  Receipt Date: 20040202
  Transmission Date: 20041129
  Serious: Yes (Hospitalization)
  Sender: FDA-Public Use
  Company Number: T03-JPN-04330-01

PATIENT
  Age: 80 Year
  Sex: Female

DRUGS (5)
  1. MEMANTINE HCL [Suspect]
     Indication: DEMENTIA ALZHEIMER'S TYPE
     Dosage: 20 MG QD PO
     Route: 048
     Dates: start: 20030703, end: 20030915
  2. SIMVASTATIN [Concomitant]
  3. BROTIZOLAM [Concomitant]
  4. ISOSORBIDE [Concomitant]
  5. NICERGOLINE [Concomitant]

REACTIONS (8)
  - AGGRESSION [None]
  - ANGER [None]
  - DEMENTIA ALZHEIMER'S TYPE [None]
  - DISEASE PROGRESSION [None]
  - EXCITABILITY [None]
  - INSOMNIA [None]
  - PORIOMANIA [None]
  - URINE OUTPUT DECREASED [None]
